FAERS Safety Report 7877293-1 (Version None)
Quarter: 2011Q4

REPORT INFORMATION
  Report Type: 
  Country: None (occurrence: None)
  Receive Date: 20111031
  Receipt Date: 20111025
  Transmission Date: 20120403
  Serious: Yes (Death)
  Sender: FDA-Public Use
  Company Number: US-AMGEN-US337986

PATIENT
  Age: 76 Year
  Sex: Male

DRUGS (2)
  1. NPLATE [Suspect]
     Indication: IDIOPATHIC THROMBOCYTOPENIC PURPURA
     Dosage: 400 MUG/KG, UNK
     Dates: start: 20081202
  2. NPLATE [Suspect]
     Dosage: 400 MUG/KG, UNK
     Dates: end: 20071223

REACTIONS (2)
  - RENAL FAILURE ACUTE [None]
  - HEPATIC FAILURE [None]
